FAERS Safety Report 18329580 (Version 1)
Quarter: 2020Q3

REPORT INFORMATION
  Report Type: Spontaneous
  Country: FR (occurrence: FR)
  Receive Date: 20200930
  Receipt Date: 20200930
  Transmission Date: 20201103
  Serious: Yes (Other)
  Sender: FDA-Public Use
  Company Number: FR-FRESENIUS KABI-FK202010100

PATIENT
  Age: 70 Year
  Sex: Male

DRUGS (8)
  1. OSILODROSTAT [Concomitant]
     Active Substance: OSILODROSTAT
     Indication: HYPERADRENOCORTICISM
     Route: 065
  2. HYDROCORTISONE. [Concomitant]
     Active Substance: HYDROCORTISONE
     Indication: GLUCOCORTICOID DEFICIENCY
     Dosage: MORNING DOSE
     Route: 065
  3. PACLITAXEL (MANUFACTURER UNKNOWN) [Suspect]
     Active Substance: PACLITAXEL
     Indication: SMALL CELL LUNG CANCER
     Route: 065
  4. KETOCONAZOLE. [Interacting]
     Active Substance: KETOCONAZOLE
     Indication: PRODUCT USED FOR UNKNOWN INDICATION
     Route: 065
  5. METYRAPONE [Concomitant]
     Active Substance: METYRAPONE
     Indication: HYPERADRENOCORTICISM
     Route: 065
  6. OSILODROSTAT [Concomitant]
     Active Substance: OSILODROSTAT
     Dosage: 4 MG/DAY FOR 14 DAYS
     Route: 065
  7. OSILODROSTAT [Concomitant]
     Active Substance: OSILODROSTAT
     Route: 065
  8. OSILODROSTAT [Concomitant]
     Active Substance: OSILODROSTAT
     Route: 065

REACTIONS (2)
  - Hepatotoxicity [Unknown]
  - Drug interaction [Unknown]
